FAERS Safety Report 4579994-X (Version None)
Quarter: 2005Q1

REPORT INFORMATION
  Report Type: 
  Country: None (occurrence: None)
  Receive Date: 20050210
  Receipt Date: 20041209
  Transmission Date: 20050727
  Serious: Yes (Hospitalization, Other)
  Sender: FDA-Public Use
  Company Number: 2004110542

PATIENT
  Age: 77 Year
  Sex: Male
  Weight: 61.2356 kg

DRUGS (3)
  1. LIPITOR [Suspect]
     Indication: BLOOD CHOLESTEROL INCREASED
     Dosage: 20 MG (20 MG, 1 IN 1 D), ORAL
     Route: 048
     Dates: start: 20010101, end: 20041011
  2. DYAZIDE [Concomitant]
  3. ACETYLSALICYLIC ACID SRT [Concomitant]

REACTIONS (7)
  - ARTHRALGIA [None]
  - BRONCHITIS [None]
  - CIRCULATORY COLLAPSE [None]
  - EXTRASYSTOLES [None]
  - HEART RATE IRREGULAR [None]
  - PAIN IN EXTREMITY [None]
  - RECTAL HAEMORRHAGE [None]
